FAERS Safety Report 15973866 (Version 4)
Quarter: 2024Q2

REPORT INFORMATION
  Report Type: Spontaneous
  Country: PL (occurrence: PL)
  Receive Date: 20190217
  Receipt Date: 20240423
  Transmission Date: 20240716
  Serious: Yes (Other)
  Sender: FDA-Public Use
  Company Number: PHHY2018PL115555

PATIENT
  Age: 65 Year
  Sex: Female

DRUGS (17)
  1. ZOLEDRONIC ACID [Suspect]
     Active Substance: ZOLEDRONIC ACID
     Indication: Product used for unknown indication
     Dosage: 1 DOSAGE FORM
     Route: 042
  2. ZOLEDRONIC ACID [Suspect]
     Active Substance: ZOLEDRONIC ACID
     Dosage: UNK
     Route: 042
  3. TAMOXIFEN [Suspect]
     Active Substance: TAMOXIFEN
     Indication: Breast cancer metastatic
     Dosage: UNK
     Route: 065
     Dates: start: 201207
  4. TAMOXIFEN [Suspect]
     Active Substance: TAMOXIFEN
     Indication: Breast cancer stage IV
  5. CYCLOPHOSPHAMIDE [Suspect]
     Active Substance: CYCLOPHOSPHAMIDE
     Indication: Breast cancer stage IV
     Dosage: 600 MG/M2, Q3W(EVERY 3 WEEKS IN FEC SCHEME)
     Route: 042
     Dates: start: 201202, end: 201204
  6. CYCLOPHOSPHAMIDE [Suspect]
     Active Substance: CYCLOPHOSPHAMIDE
     Indication: Breast cancer metastatic
     Dosage: 1800 MG/M2, QW 600 MG/M2, Q3W(EVERY 3 WEEK IN FEC SCHEME)
     Route: 042
     Dates: start: 201710
  7. CYCLOPHOSPHAMIDE [Suspect]
     Active Substance: CYCLOPHOSPHAMIDE
     Indication: Adjuvant therapy
     Dosage: 600 MG/M2, Q3W(EVERY 3 WEEK IN FEC SCHEME)
     Route: 042
     Dates: start: 201807
  8. DOCETAXEL [Suspect]
     Active Substance: DOCETAXEL\DOCETAXEL ANHYDROUS
     Indication: Breast cancer stage IV
     Dosage: NEOADJUVANT THERAPY
     Route: 065
  9. DOXORUBICIN [Suspect]
     Active Substance: DOXORUBICIN
     Indication: Breast cancer metastatic
     Dosage: NEOADJUVANT CHEMOTHERAPY
     Route: 065
  10. DOXORUBICIN [Suspect]
     Active Substance: DOXORUBICIN
     Indication: Breast cancer stage IV
     Dosage: COMPLEMENTARY CHEMOTHERAPY
     Route: 065
  11. DOXORUBICIN [Suspect]
     Active Substance: DOXORUBICIN
     Indication: Breast cancer metastatic
     Dosage: NEOADJUVANT CHEMOTHERAPY
     Route: 065
     Dates: start: 201710
  12. DOXORUBICIN [Suspect]
     Active Substance: DOXORUBICIN
     Indication: Breast cancer stage IV
     Dosage: UNK
     Route: 065
     Dates: start: 201207
  13. LETROZOLE [Suspect]
     Active Substance: LETROZOLE
     Indication: Breast cancer metastatic
     Dosage: UNK
     Route: 065
     Dates: start: 201805
  14. CAPECITABINE [Concomitant]
     Active Substance: CAPECITABINE
     Indication: Breast cancer stage IV
     Dosage: UNK
     Route: 065
  15. LEVOFLOXACIN [Concomitant]
     Active Substance: LEVOFLOXACIN
     Indication: Product used for unknown indication
     Dosage: UNK
     Route: 065
  16. VINORELBINE [Concomitant]
     Active Substance: VINORELBINE TARTRATE
     Indication: Breast cancer stage IV
     Dosage: METRONOMIC THERAPY
     Route: 065
  17. PACLITAXEL [Concomitant]
     Active Substance: PACLITAXEL
     Indication: Breast cancer stage IV
     Dosage: UNK
     Route: 065

REACTIONS (3)
  - Metastases to stomach [Unknown]
  - Breast cancer recurrent [Unknown]
  - Malignant neoplasm progression [Unknown]
